FAERS Safety Report 15334104 (Version 1)
Quarter: 2018Q3

REPORT INFORMATION
  Report Type: Spontaneous
  Country: FR (occurrence: FR)
  Receive Date: 20180830
  Receipt Date: 20180830
  Transmission Date: 20181010
  Serious: Yes (Death, Life-Threatening, Hospitalization, Other)
  Sender: FDA-Public Use
  Company Number: PHHY2018FR085909

PATIENT
  Age: 65 Year
  Sex: Male
  Weight: 87 kg

DRUGS (5)
  1. BACTRIM [Concomitant]
     Active Substance: SULFAMETHOXAZOLE\TRIMETHOPRIM
     Indication: PRODUCT USED FOR UNKNOWN INDICATION
     Dosage: UNK
     Route: 065
     Dates: start: 20160531, end: 20161220
  2. OFATUMUMAB [Concomitant]
     Active Substance: OFATUMUMAB
     Indication: CHRONIC LYMPHOCYTIC LEUKAEMIA
     Dosage: 300 MG, UNK
     Route: 042
  3. CIFLOX [Suspect]
     Active Substance: CIPROFLOXACIN
     Indication: LUNG INFECTION
     Dosage: 1000 MG, QD (500 MG, BID)
     Route: 048
     Dates: start: 20160226, end: 20160301
  4. OFATUMUMAB [Concomitant]
     Active Substance: OFATUMUMAB
     Dosage: 200 MG, UNK
     Route: 042
  5. AMOXICILLIN AND CLAVULANATE POTASSIUM [Suspect]
     Active Substance: AMOXICILLIN\CLAVULANATE POTASSIUM
     Indication: LUNG INFECTION
     Dosage: 1 G, Q8H
     Route: 048
     Dates: start: 20160226, end: 20160301

REACTIONS (7)
  - Haemolytic anaemia [Not Recovered/Not Resolved]
  - Acute respiratory distress syndrome [Fatal]
  - Lung infection [Recovered/Resolved]
  - Pyrexia [Not Recovered/Not Resolved]
  - Agranulocytosis [Recovered/Resolved]
  - Lung infection [Recovered/Resolved]
  - Pyrexia [Recovered/Resolved]

NARRATIVE: CASE EVENT DATE: 20160301
